FAERS Safety Report 7535262-5 (Version None)
Quarter: 2011Q2

REPORT INFORMATION
  Report Type: 
  Country: None (occurrence: None)
  Receive Date: 20110609
  Receipt Date: 20100204
  Transmission Date: 20111010
  Serious: No
  Sender: FDA-Public Use
  Company Number: 2010BI004269

PATIENT
  Sex: Male

DRUGS (3)
  1. TYSABRI [Suspect]
     Indication: MULTIPLE SCLEROSIS
     Route: 042
     Dates: start: 20090827
  2. BACLOFEN [Concomitant]
     Indication: MUSCULOSKELETAL STIFFNESS
     Dates: start: 20080101
  3. BACLOFEN [Concomitant]
     Indication: MUSCLE SPASTICITY
     Dates: start: 20080101

REACTIONS (6)
  - PAIN IN EXTREMITY [None]
  - MUSCLE SPASTICITY [None]
  - BONE PAIN [None]
  - MUSCULOSKELETAL STIFFNESS [None]
  - MEMORY IMPAIRMENT [None]
  - COGNITIVE DISORDER [None]
